FAERS Safety Report 8693513 (Version 2)
Quarter: 2012Q4

REPORT INFORMATION
  Report Type: 
  Country: GB (occurrence: GB)
  Receive Date: 20120730
  Receipt Date: 20120920
  Transmission Date: 20130627
  Serious: Yes (Hospitalization, Other)
  Sender: FDA-Public Use
  Company Number: GB-TEVA-349223ISR

PATIENT
  Age: 93 Year
  Sex: Female

DRUGS (6)
  1. TRIMETHOPRIM [Suspect]
     Indication: URINARY TRACT INFECTION
     Route: 048
     Dates: start: 20120701, end: 20120705
  2. LISINOPRIL [Concomitant]
  3. DIPYRIDAMOLE [Concomitant]
  4. SIMVASTATIN [Concomitant]
  5. CO-CODAMOL [Concomitant]
  6. LANSOPRAZOLE [Concomitant]

REACTIONS (1)
  - Pancytopenia [Recovered/Resolved]
